FAERS Safety Report 24948317 (Version 1)
Quarter: 2025Q1

REPORT INFORMATION
  Report Type: Spontaneous
  Country: US (occurrence: US)
  Receive Date: 20250210
  Receipt Date: 20250210
  Transmission Date: 20250409
  Serious: Yes (Other)
  Sender: ROCHE
  Company Number: US-ROCHE-10000200119

PATIENT
  Age: 56 Year
  Sex: Female

DRUGS (1)
  1. OCREVUS [Suspect]
     Active Substance: OCRELIZUMAB
     Indication: Multiple sclerosis
     Dosage: LAST DOSE ON SEP/2024
     Route: 065
     Dates: start: 202009

REACTIONS (1)
  - Breast cancer [Unknown]
